FAERS Safety Report 12170489 (Version 2)
Quarter: 2016Q4

REPORT INFORMATION
  Report Type: Spontaneous
  Country: GB (occurrence: GB)
  Receive Date: 20160311
  Receipt Date: 20161028
  Transmission Date: 20170207
  Serious: Yes (Disabling, Other)
  Sender: FDA-Public Use
  Company Number: GB-ACCORD-038598

PATIENT
  Age: 35 Year
  Sex: Male

DRUGS (11)
  1. DIHYDROCODEINE [Concomitant]
     Active Substance: DIHYDROCODEINE
     Dosage: CURRENTLY TAKING
  2. CANDESARTAN [Concomitant]
     Active Substance: CANDESARTAN
     Indication: MIGRAINE
  3. MATRIFEN [Suspect]
     Active Substance: FENTANYL
     Indication: PRODUCT USED FOR UNKNOWN INDICATION
     Dosage: STARTED 7 MONTHS AGO.?STOPPED A MONTH AGO.
     Route: 061
  4. ORAMORPH [Concomitant]
     Active Substance: MORPHINE SULFATE
  5. IBUPROFEN. [Concomitant]
     Active Substance: IBUPROFEN
  6. AMITRIPTYLINE [Suspect]
     Active Substance: AMITRIPTYLINE
     Indication: PRODUCT USED FOR UNKNOWN INDICATION
  7. CODEINE PHOSPHATE/PARACETAMOL [Concomitant]
  8. MORPHINE [Concomitant]
     Active Substance: MORPHINE
  9. DIAZEPAM. [Concomitant]
     Active Substance: DIAZEPAM
  10. PARACETAMOL [Concomitant]
     Active Substance: ACETAMINOPHEN
  11. BACLOFEN. [Concomitant]
     Active Substance: BACLOFEN
     Indication: HICCUPS

REACTIONS (14)
  - Tremor [Not Recovered/Not Resolved]
  - Paraesthesia [Not Recovered/Not Resolved]
  - Negative thoughts [Not Recovered/Not Resolved]
  - Pruritus [Not Recovered/Not Resolved]
  - Suicidal ideation [Not Recovered/Not Resolved]
  - Hyperhidrosis [Not Recovered/Not Resolved]
  - Insomnia [Not Recovered/Not Resolved]
  - Somnolence [Not Recovered/Not Resolved]
  - Abnormal dreams [Not Recovered/Not Resolved]
  - Palpitations [Not Recovered/Not Resolved]
  - Nightmare [Not Recovered/Not Resolved]
  - Migraine [Recovering/Resolving]
  - Blood pressure increased [Not Recovered/Not Resolved]
  - Cold sweat [Not Recovered/Not Resolved]
